FAERS Safety Report 9491423 (Version 2)
Quarter: 2013Q1

REPORT INFORMATION
  Report Type: Not Available
  Country: US (occurrence: US)
  Receive Date: 20120619
  Receipt Date: 20120619
  Transmission Date: 20140127
  Serious: Yes (Hospitalization)
  Sender: FDA-Public Use
  Company Number: US-LUNDBECK-DKLU1072928

PATIENT
  Age: 23 None
  Sex: Female
  Weight: 87.3 kg

DRUGS (38)
  1. CLOBAZAM [Suspect]
     Indication: LENNOX-GASTAUT SYNDROME
     Route: 048
     Dates: start: 20090430
  2. CLOBAZAM [Suspect]
     Route: 048
     Dates: start: 20090430
  3. CLOBAZAM [Suspect]
     Route: 048
     Dates: start: 20090430
  4. DIASTAT [Concomitant]
     Indication: CONVULSION
     Route: 048
  5. RISPERIDONE [Concomitant]
     Indication: ANXIETY
     Route: 048
     Dates: start: 20100511
  6. MULTIVITAMIN [Concomitant]
     Indication: VITAMIN SUPPLEMENTATION
  7. FLUOXETINE [Concomitant]
     Indication: ANXIETY
     Route: 048
     Dates: start: 20100511
  8. ZOLPIDEM TARTRATE [Concomitant]
     Indication: INSOMNIA
     Route: 048
     Dates: start: 20100511
  9. AZITHROMYCIN [Concomitant]
     Indication: UPPER RESPIRATORY TRACT INFECTION
     Route: 048
     Dates: start: 20100622
  10. AZITHROMYCIN [Concomitant]
     Route: 048
     Dates: start: 20091112, end: 20091113
  11. TEMAZEPAM [Concomitant]
     Indication: SLEEP DISORDER
     Route: 048
     Dates: start: 20100917
  12. MAGNESIUM OXIDE [Concomitant]
     Indication: HYPOKALAEMIA
     Route: 048
     Dates: start: 20110402
  13. LAMICTAL [Concomitant]
     Indication: CONVULSION
     Route: 048
     Dates: start: 20090617
  14. LAMICTAL [Concomitant]
     Dates: start: 201109
  15. LAMICTAL [Concomitant]
     Dates: start: 201109
  16. LAMICTAL [Concomitant]
     Dates: start: 201109
  17. MELATONIN [Concomitant]
     Indication: SLEEP DISORDER
     Route: 048
  18. CALCIUM CITRATE [Concomitant]
     Indication: MINERAL SUPPLEMENTATION
     Route: 048
     Dates: start: 20090219
  19. BANZEL [Concomitant]
     Indication: CONVULSION
     Route: 048
     Dates: start: 20091106, end: 20091117
  20. BANZEL [Concomitant]
     Route: 048
     Dates: start: 20091117, end: 20091201
  21. BANZEL [Concomitant]
     Route: 048
     Dates: start: 20091117, end: 20091201
  22. BANZEL [Concomitant]
     Route: 048
     Dates: start: 20091201
  23. NITROFURANTOIN [Concomitant]
     Indication: URINARY TRACT INFECTION
     Route: 048
     Dates: start: 20091025, end: 20091102
  24. ESCITALOPRAM [Concomitant]
     Indication: ANXIETY
     Route: 048
     Dates: start: 20100102, end: 20100202
  25. ESCITALOPRAM [Concomitant]
     Route: 048
     Dates: start: 20100202, end: 20100511
  26. HYDROCHLOROTHIAZIDE [Concomitant]
     Indication: GENERALISED OEDEMA
     Route: 048
     Dates: start: 20101011, end: 20101108
  27. LASIX [Concomitant]
     Indication: GENERALISED OEDEMA
     Route: 048
     Dates: start: 20101109
  28. LASIX [Concomitant]
     Route: 048
     Dates: start: 20101208
  29. POTASSIUM [Concomitant]
     Indication: HYPOKALAEMIA
     Route: 048
     Dates: start: 20110402
  30. ZAROXOLYN [Concomitant]
     Indication: GENERALISED OEDEMA
     Route: 048
     Dates: start: 20101208, end: 20110402
  31. CENTRUM SILVER [Concomitant]
     Indication: NUTRITIONAL SUPPLEMENTATION
     Dosage: 1 TABLET
     Route: 048
     Dates: start: 20090209
  32. VITAMIN D [Concomitant]
     Indication: NUTRITIONAL SUPPLEMENTATION
     Route: 048
     Dates: start: 20090219
  33. ACETAMINOPHEN [Concomitant]
     Indication: NASAL DISCOMFORT
     Route: 048
     Dates: start: 20090220
  34. IBUPROFEN [Concomitant]
     Indication: PYREXIA
     Route: 048
     Dates: start: 20110828, end: 20110831
  35. DEXAMETHASONE LA [Concomitant]
     Indication: RASH
     Route: 050
     Dates: start: 20110829, end: 20110831
  36. LAMOTRIGINE [Concomitant]
     Indication: CONVULSION
     Route: 048
     Dates: start: 20100202
  37. LAMOTRIGINE [Concomitant]
     Route: 048
     Dates: start: 20100202
  38. RUFINAMIDE [Concomitant]
     Indication: CONVULSION
     Route: 048
     Dates: start: 20100510

REACTIONS (1)
  - Dehydration [Recovered/Resolved]
